FAERS Safety Report 9856283 (Version 3)
Quarter: 2014Q1

REPORT INFORMATION
  Report Type: Report from Study
  Country: US (occurrence: US)
  Receive Date: 20140130
  Receipt Date: 20140305
  Transmission Date: 20141002
  Serious: Yes (Hospitalization)
  Sender: FDA-Public Use
  Company Number: US-ACTELION-A-US2014-94002

PATIENT
  Age: 66 Year
  Sex: Male

DRUGS (3)
  1. TRACLEER [Suspect]
     Indication: PULMONARY ARTERIAL HYPERTENSION
     Dosage: UNK
     Route: 048
     Dates: start: 200708
  2. TYVASO [Concomitant]
  3. COUMADIN [Concomitant]

REACTIONS (4)
  - Fall [Unknown]
  - Rib fracture [Unknown]
  - Lower limb fracture [Unknown]
  - Hip fracture [Recovering/Resolving]
